FAERS Safety Report 16489701 (Version 1)
Quarter: 2019Q2

REPORT INFORMATION
  Report Type: Spontaneous
  Country: US (occurrence: US)
  Receive Date: 20190628
  Receipt Date: 20190628
  Transmission Date: 20190711
  Serious: Yes (Other)
  Sender: FDA-Public Use
  Company Number: US-ELI_LILLY_AND_COMPANY-US201906009832

PATIENT
  Age: 71 Year
  Sex: Female
  Weight: 58.05 kg

DRUGS (8)
  1. TYVASO [Interacting]
     Active Substance: TREPROSTINIL
     Dosage: UNK UNK, UNKNOWN
     Route: 065
     Dates: start: 20190427
  2. ELIQUIS [Interacting]
     Active Substance: APIXABAN
     Indication: PRODUCT USED FOR UNKNOWN INDICATION
     Dosage: UNK UNK, UNKNOWN
     Route: 065
  3. ADCIRCA [Suspect]
     Active Substance: TADALAFIL
     Indication: PULMONARY ARTERIAL HYPERTENSION
     Dosage: UNK UNK, UNKNOWN
     Route: 065
  4. AMBRISENTAN [Interacting]
     Active Substance: AMBRISENTAN
     Indication: PULMONARY ARTERIAL HYPERTENSION
     Dosage: 10 MG, DAILY
     Route: 065
     Dates: start: 20190424
  5. TYVASO [Interacting]
     Active Substance: TREPROSTINIL
     Dosage: UNK UNK, UNKNOWN
     Route: 065
     Dates: start: 20190429
  6. TYVASO [Interacting]
     Active Substance: TREPROSTINIL
     Indication: PULMONARY ARTERIAL HYPERTENSION
     Dosage: (3-9 BREATH QID)UNK UNK, UNKNOWN
     Route: 065
     Dates: start: 20190424
  7. TYVASO [Interacting]
     Active Substance: TREPROSTINIL
     Dosage: UNK UNK, UNKNOWN
     Route: 065
     Dates: start: 20190429
  8. AMBRISENTAN [Interacting]
     Active Substance: AMBRISENTAN
     Dosage: 5 MG, PRN
     Route: 065

REACTIONS (20)
  - Throat irritation [Recovered/Resolved]
  - Toothache [Not Recovered/Not Resolved]
  - Diarrhoea [Not Recovered/Not Resolved]
  - Pulmonary arterial hypertension [Unknown]
  - Musculoskeletal pain [Unknown]
  - Lower respiratory tract infection [Not Recovered/Not Resolved]
  - Drug ineffective [Unknown]
  - Cough [Recovered/Resolved]
  - Dyspnoea exertional [Not Recovered/Not Resolved]
  - Bronchitis [Unknown]
  - Oxygen saturation decreased [Not Recovered/Not Resolved]
  - Pain [Unknown]
  - Renal impairment [Not Recovered/Not Resolved]
  - Drug interaction [Unknown]
  - Blood pressure decreased [Unknown]
  - Oropharyngeal pain [Unknown]
  - Dyspnoea [Not Recovered/Not Resolved]
  - Chest pain [Unknown]
  - Epistaxis [Recovered/Resolved]
  - Headache [Not Recovered/Not Resolved]

NARRATIVE: CASE EVENT DATE: 201904
